FAERS Safety Report 10030254 (Version 2)
Quarter: 2014Q1

REPORT INFORMATION
  Report Type: Spontaneous
  Country: US (occurrence: US)
  Receive Date: 20140323
  Receipt Date: 20140323
  Transmission Date: 20141002
  Serious: No
  Sender: FDA-Public Use
  Company Number: US-ALLERGAN-1308105US

PATIENT
  Age: 47 Year
  Sex: Female

DRUGS (2)
  1. LATISSE 0.03% [Suspect]
     Indication: GROWTH OF EYELASHES
     Dosage: 2 GTT, QHS
     Route: 061
     Dates: start: 2011
  2. SYNTHROID [Concomitant]
     Indication: THYROID NODULE REMOVAL
     Dosage: UNK UNK, QD
     Route: 048
     Dates: start: 1990

REACTIONS (4)
  - Wrong technique in drug usage process [Unknown]
  - Drug ineffective [Unknown]
  - Madarosis [Unknown]
  - Trichorrhexis [Unknown]
